FAERS Safety Report 4610708-0 (Version None)
Quarter: 2005Q2

REPORT INFORMATION
  Report Type: 
  Country: None (occurrence: None)
  Receive Date: 20050228
  Receipt Date: 20040308
  Transmission Date: 20051028
  Serious: Yes (Hospitalization)
  Sender: FDA-Public Use
  Company Number: 204834

PATIENT
  Age: 4 Year
  Sex: Male

DRUGS (6)
  1. NUTROPIN AQ [Suspect]
     Indication: GROWTH HORMONE DEFICIENCY
     Dosage: 0.6 MG, 6./WEEK, SUBCUTANEOUS
     Route: 058
     Dates: start: 20031121, end: 20040121
  2. ENALAPRIL MALEATE [Concomitant]
  3. PROGRAF [Concomitant]
  4. ZYRTEC [Concomitant]
  5. PRILOSEC [Concomitant]
  6. PREDNISOLONE [Concomitant]

REACTIONS (1)
  - PANCREATITIS [None]
